FAERS Safety Report 4530300-6 (Version None)
Quarter: 2004Q4

REPORT INFORMATION
  Report Type: 
  Country: None (occurrence: None)
  Receive Date: 20041216
  Receipt Date: 20041216
  Transmission Date: 20050328
  Serious: Yes (Hospitalization)
  Sender: FDA-Public Use
  Company Number: None

PATIENT
  Age: 54 Year
  Sex: Male
  Weight: 87.9978 kg

DRUGS (4)
  1. WARFARIN    2.5MG     BRISTOL-MYERS SQUIBB [Suspect]
     Indication: ATRIAL FIBRILLATION
     Dosage: 2.5MG   DAILY   ORAL
     Route: 048
     Dates: start: 19990101, end: 20040706
  2. BUMEX [Concomitant]
  3. METOLAZONE [Concomitant]
  4. AMIODARONE HCL [Concomitant]

REACTIONS (1)
  - EPISTAXIS [None]
